FAERS Safety Report 8537912-3 (Version None)
Quarter: 2012Q3

REPORT INFORMATION
  Report Type: 
  Country: None (occurrence: None)
  Receive Date: 20120725
  Receipt Date: 20120720
  Transmission Date: 20120928
  Serious: Yes (Hospitalization)
  Sender: FDA-Public Use
  Company Number: JP-GLAXOSMITHKLINE-B0735817A

PATIENT
  Sex: Male
  Weight: 53 kg

DRUGS (14)
  1. PROMACTA [Suspect]
     Dosage: 12.5MG PER DAY
     Route: 048
     Dates: start: 20110728, end: 20110810
  2. PROMACTA [Suspect]
     Dosage: 25MG PER DAY
     Route: 048
     Dates: start: 20110706, end: 20110727
  3. PROMACTA [Suspect]
     Dosage: 25MG PER DAY
     Route: 048
     Dates: start: 20110811, end: 20120531
  4. WARFARIN SODIUM [Concomitant]
     Dosage: 3MG PER DAY
     Route: 048
  5. ASPIRIN [Concomitant]
     Dosage: 100MG PER DAY
     Route: 048
  6. ALLOPURINOL [Concomitant]
     Dosage: 200MG PER DAY
     Route: 048
  7. AMLODIPINE [Concomitant]
     Dosage: 5MG PER DAY
     Route: 048
  8. OLMESARTAN MEDOXOMIL [Concomitant]
     Dosage: 10MG PER DAY
     Route: 048
  9. ALMARL [Concomitant]
     Dosage: 20MG PER DAY
     Route: 048
  10. PROMACTA [Suspect]
     Indication: IDIOPATHIC THROMBOCYTOPENIC PURPURA
     Dosage: 12.5MG PER DAY
     Route: 048
     Dates: start: 20110614, end: 20110705
  11. LANSOPRAZOLE [Concomitant]
     Dosage: 30MG PER DAY
     Route: 048
  12. PREDNISOLONE [Concomitant]
     Indication: IDIOPATHIC THROMBOCYTOPENIC PURPURA
     Dosage: 15MG PER DAY
     Route: 048
  13. FUROSEMIDE [Concomitant]
     Dosage: 20MG PER DAY
     Route: 048
  14. ZETIA [Concomitant]
     Dosage: 10MG PER DAY
     Route: 048

REACTIONS (2)
  - CEREBRAL HAEMORRHAGE [None]
  - ANAEMIA [None]
